FAERS Safety Report 9560916 (Version 2)
Quarter: 2014Q2

REPORT INFORMATION
  Report Type: Spontaneous
  Country: US (occurrence: US)
  Receive Date: 20130927
  Receipt Date: 20140421
  Transmission Date: 20141212
  Serious: No
  Sender: FDA-Public Use
  Company Number: US-BIOGENIDEC-2013BI055197

PATIENT
  Age: 48 Year
  Sex: Female
  Weight: 108 kg

DRUGS (13)
  1. TECFIDERA [Suspect]
     Indication: MULTIPLE SCLEROSIS
     Dates: start: 201306
  2. TECFIDERA [Suspect]
     Indication: MULTIPLE SCLEROSIS
     Dates: start: 20130610
  3. VIT D [Concomitant]
  4. METFORMIN [Concomitant]
  5. GLYBURIDE [Concomitant]
  6. VYVANSE [Concomitant]
  7. LIPITOR [Concomitant]
  8. SINGULAIR [Concomitant]
  9. PROZAC [Concomitant]
  10. ALBUTEROL [Concomitant]
  11. PROAIR [Concomitant]
  12. LEVEMIR [Concomitant]
  13. NOVOLOG [Concomitant]

REACTIONS (12)
  - Headache [Not Recovered/Not Resolved]
  - Swelling face [Not Recovered/Not Resolved]
  - Eye swelling [Not Recovered/Not Resolved]
  - Chest discomfort [Not Recovered/Not Resolved]
  - Wheezing [Not Recovered/Not Resolved]
  - Dyspnoea [Not Recovered/Not Resolved]
  - Insomnia [Unknown]
  - Diarrhoea [Unknown]
  - Flushing [Not Recovered/Not Resolved]
  - Nausea [Not Recovered/Not Resolved]
  - Rash [Not Recovered/Not Resolved]
  - Pruritus [Not Recovered/Not Resolved]
